FAERS Safety Report 6196038-7 (Version None)
Quarter: 2009Q2

REPORT INFORMATION
  Report Type: 
  Country: None (occurrence: None)
  Receive Date: 20090520
  Receipt Date: 20090427
  Transmission Date: 20091009
  Serious: Yes (Hospitalization)
  Sender: FDA-Public Use
  Company Number: DE-PFIZER INC-2009188969

PATIENT
  Age: 71 Year

DRUGS (4)
  1. NORVASC [Suspect]
  2. AMLODIPINE [Suspect]
     Dosage: UNK
  3. METOPROLOL [Concomitant]
     Route: 048
  4. TIMOLOL [Concomitant]
     Indication: GLAUCOMA

REACTIONS (1)
  - ECZEMA [None]
